FAERS Safety Report 19815170 (Version 1)
Quarter: 2021Q3

REPORT INFORMATION
  Report Type: Spontaneous
  Country: US (occurrence: US)
  Receive Date: 20210909
  Receipt Date: 20210909
  Transmission Date: 20211014
  Serious: Yes (Other)
  Sender: FDA-Public Use
  Company Number: US-BRISTOL-MYERS SQUIBB COMPANY-BMS-2021-089395

PATIENT
  Sex: Female
  Weight: 56.69 kg

DRUGS (4)
  1. ELIQUIS [Suspect]
     Active Substance: APIXABAN
     Indication: CEREBROVASCULAR ACCIDENT PROPHYLAXIS
     Dosage: 5 MILLIGRAM, BID
     Route: 048
  2. NASACORT [Concomitant]
     Active Substance: TRIAMCINOLONE ACETONIDE
     Indication: PRODUCT USED FOR UNKNOWN INDICATION
     Dosage: UNK, QD
     Route: 065
  3. ALBUTEROL [SALBUTAMOL SULFATE] [Concomitant]
     Active Substance: ALBUTEROL SULFATE
     Indication: PRODUCT USED FOR UNKNOWN INDICATION
     Route: 065
  4. CHLOROHISTOL [Concomitant]
     Indication: COUGH
     Route: 065

REACTIONS (9)
  - Renal impairment [Unknown]
  - Paralysis [Unknown]
  - Ear infection [Unknown]
  - Contusion [Unknown]
  - Enzyme abnormality [Unknown]
  - Pharyngitis streptococcal [Unknown]
  - Tooth infection [Unknown]
  - Sinusitis [Unknown]
  - Parathyroid disorder [Unknown]
